FAERS Safety Report 4656127-2 (Version None)
Quarter: 2005Q2

REPORT INFORMATION
  Report Type: 
  Country: None (occurrence: None)
  Receive Date: 20050509
  Receipt Date: 20050426
  Transmission Date: 20051028
  Serious: Yes (Other)
  Sender: FDA-Public Use
  Company Number: US-NOVOPROD-243757

PATIENT
  Age: 16 Year
  Sex: Male
  Weight: 99 kg

DRUGS (3)
  1. NORDITROPIN CARTRIDGES [Suspect]
     Indication: GROWTH HORMONE DEFICIENCY
     Dosage: 2.6 MG, QD
     Route: 058
     Dates: start: 20030101, end: 20050413
  2. NORDITROPIN CARTRIDGES [Suspect]
     Dosage: 5.2 MG, SINGLE
     Route: 058
     Dates: start: 20050415, end: 20050415
  3. NORDITROPIN CARTRIDGES [Suspect]
     Dosage: 2.6 MG, QD
     Route: 058
     Dates: start: 20050416, end: 20050420

REACTIONS (3)
  - HYPERSENSITIVITY [None]
  - SWELLING FACE [None]
  - SWOLLEN TONGUE [None]
